FAERS Safety Report 5324595-9 (Version None)
Quarter: 2007Q2

REPORT INFORMATION
  Report Type: 
  Country: None (occurrence: None)
  Receive Date: 20070514
  Receipt Date: 20070504
  Transmission Date: 20071010
  Serious: Yes (Other)
  Sender: FDA-Public Use
  Company Number: US-PFIZER INC-2007037052

PATIENT
  Sex: Female
  Weight: 67.6 kg

DRUGS (10)
  1. LYRICA [Suspect]
     Indication: FIBROMYALGIA
  2. METOPROLOL SUCCINATE [Concomitant]
  3. LANTUS [Concomitant]
  4. HUMALOG [Concomitant]
  5. LEVOTHYROXINE SODIUM [Concomitant]
     Indication: THYROID DISORDER
  6. CYMBALTA [Concomitant]
  7. XANAX [Concomitant]
  8. LASIX [Concomitant]
     Dosage: DAILY DOSE:80MG
  9. SPIRONOLACTONE [Concomitant]
  10. PREDNISONE TAB [Concomitant]
     Indication: TEMPORAL ARTERITIS

REACTIONS (3)
  - BLOOD GLUCOSE INCREASED [None]
  - BREAST CANCER [None]
  - DIABETES MELLITUS INADEQUATE CONTROL [None]
